FAERS Safety Report 8508615-6 (Version None)
Quarter: 2012Q3

REPORT INFORMATION
  Report Type: 
  Country: None (occurrence: None)
  Receive Date: 20120713
  Receipt Date: 20120709
  Transmission Date: 20120928
  Serious: Yes (Other)
  Sender: FDA-Public Use
  Company Number: GB-009507513-1205USA00026

PATIENT

DRUGS (22)
  1. CISPLATIN [Suspect]
     Indication: BONE SARCOMA
     Dosage: 63 MG, QD
     Route: 042
     Dates: start: 20120417, end: 20120420
  2. ACETAMINOPHEN [Concomitant]
     Dosage: 1 G, QID
     Route: 048
     Dates: start: 20120415, end: 20120415
  3. DIHYDROCODEINE BITARTRATE INJ [Concomitant]
     Indication: PAIN
     Dosage: 30 MG, BID
     Route: 048
     Dates: start: 20120414, end: 20120414
  4. APREPITANT [Suspect]
     Dosage: 80 MG, ONCE
     Route: 048
     Dates: start: 20120419, end: 20120419
  5. LEVOMEPROMAZINE [Concomitant]
     Indication: VOMITING
     Dosage: 1.3 MG, BID
     Route: 042
     Dates: start: 20120419, end: 20120419
  6. SODIUM CHLORIDE [Concomitant]
     Indication: FLUID REPLACEMENT
     Dosage: 1000 ML, ONCE
     Route: 042
     Dates: start: 20120417, end: 20120417
  7. ACETAMINOPHEN [Concomitant]
     Dosage: 1 G, ONCE
     Route: 048
     Dates: start: 20120418, end: 20120418
  8. DEXAMETHASONE [Suspect]
     Indication: PROPHYLAXIS OF NAUSEA AND VOMITING
     Dosage: 12 ML, ONCE
     Route: 041
     Dates: start: 20120417, end: 20120417
  9. METOCLOPRAMIDE [Concomitant]
     Indication: NAUSEA
     Dosage: 10 MG, QID
     Route: 042
     Dates: start: 20120419, end: 20120419
  10. METOCLOPRAMIDE [Concomitant]
     Indication: VOMITING
  11. ACETAMINOPHEN [Concomitant]
     Dosage: 1 G, TID
     Route: 048
     Dates: start: 20120416, end: 20120416
  12. ACETAMINOPHEN [Concomitant]
     Dosage: 1 G, QID
     Route: 048
     Dates: start: 20120417, end: 20120417
  13. DIHYDROCODEINE BITARTRATE INJ [Concomitant]
     Dosage: 90 MG, PRN
     Route: 048
     Dates: start: 20120415, end: 20120415
  14. DEXAMETHASONE [Suspect]
     Dosage: 15 ML, TID
     Route: 042
     Dates: start: 20120418, end: 20120420
  15. ONDANSETRON HYDROCHLORIDE [Suspect]
     Indication: PROPHYLAXIS OF NAUSEA AND VOMITING
     Dosage: 8 MG, UNK
     Route: 048
     Dates: start: 20120417, end: 20120420
  16. ONDANSETRON HYDROCHLORIDE [Suspect]
     Dosage: 8 MG, UNK
     Route: 048
     Dates: start: 20120418, end: 20120420
  17. ONDANSETRON [Concomitant]
     Indication: NAUSEA
     Dosage: 8 MG, BID
     Route: 042
     Dates: start: 20120414, end: 20120414
  18. ACETAMINOPHEN [Concomitant]
     Indication: PAIN
     Dosage: 1 G, QD
     Route: 048
     Dates: start: 20120413, end: 20120414
  19. AMETOP [Concomitant]
     Indication: ANALGESIC THERAPY
     Dosage: 40 MG, ONCE
     Route: 061
     Dates: start: 20120413, end: 20120413
  20. APREPITANT [Suspect]
     Dosage: 125 MG, ONCE
     Route: 048
     Dates: start: 20120417, end: 20120417
  21. APREPITANT [Suspect]
     Dosage: 80 MG, ONCE
     Route: 048
     Dates: start: 20120418, end: 20120418
  22. DOXORUBICIN HCL [Suspect]
     Indication: BONE SARCOMA
     Dosage: 59 MG, QD
     Route: 042
     Dates: start: 20120417, end: 20120419

REACTIONS (1)
  - ELECTROCARDIOGRAM T WAVE INVERSION [None]
